FAERS Safety Report 5299017-7 (Version None)
Quarter: 2007Q2

REPORT INFORMATION
  Report Type: 
  Country: None (occurrence: None)
  Receive Date: 20070412
  Receipt Date: 20070412
  Transmission Date: 20071010
  Serious: Yes (Death)
  Sender: FDA-Public Use
  Company Number: None

PATIENT
  Age: 33 Year
  Sex: Male
  Weight: 77.1115 kg

DRUGS (5)
  1. DIAZEPAM [Suspect]
     Indication: MUSCLE SPASMS
     Dosage: 10 MG TID PO
     Route: 048
     Dates: start: 20000101, end: 20061116
  2. DEPAKOTE [Concomitant]
  3. PROZAC [Concomitant]
  4. VALIUM [Concomitant]
  5. IMITREX [Concomitant]

REACTIONS (11)
  - ACCIDENTAL OVERDOSE [None]
  - ANXIETY [None]
  - CARDIOMEGALY [None]
  - DRUG DEPENDENCE [None]
  - DRUG TOXICITY [None]
  - EAR HAEMORRHAGE [None]
  - HEADACHE [None]
  - MIGRAINE [None]
  - SINUSITIS [None]
  - VENTRICULAR HYPERTROPHY [None]
  - VISION BLURRED [None]
